FAERS Safety Report 17225020 (Version 2)
Quarter: 2020Q1

REPORT INFORMATION
  Report Type: Spontaneous
  Country: US (occurrence: US)
  Receive Date: 20200102
  Receipt Date: 20200106
  Transmission Date: 20200409
  Serious: Yes (Other)
  Sender: FDA-Public Use
  Company Number: US-PFIZER INC-2019558066

PATIENT
  Age: 62 Year
  Sex: Female

DRUGS (3)
  1. CARBOPLATIN. [Suspect]
     Active Substance: CARBOPLATIN
     Indication: SEROUS CYSTADENOCARCINOMA OVARY
     Dosage: 200 MG/M2, CYCLIC, 5 COURSES OF INTRAPERITONEAL THERAPY (200 MG/M^2 FOR THE FIRST COURSE, AND 300 MG
     Route: 033
     Dates: start: 1987
  2. ETOPOSIDE. [Concomitant]
     Active Substance: ETOPOSIDE
     Indication: SEROUS CYSTADENOCARCINOMA OVARY
     Dosage: 50 MG/M2, CYCLIC (FIVE CYCLES)
  3. CARBOPLATIN. [Suspect]
     Active Substance: CARBOPLATIN
     Dosage: 300 MG/M2, CYCLIC (5 COURSES OF INTRAPERITONEAL THERAPY (200 MG/M^2 FOR THE FIRST COURSE, AND 300 MG
     Route: 033
     Dates: start: 1987

REACTIONS (3)
  - Tubulointerstitial nephritis [Recovering/Resolving]
  - Acute kidney injury [Unknown]
  - Hypersensitivity [Unknown]

NARRATIVE: CASE EVENT DATE: 198905
